FAERS Safety Report 8305316-4 (Version None)
Quarter: 2012Q2

REPORT INFORMATION
  Report Type: 
  Country: None (occurrence: None)
  Receive Date: 20120423
  Receipt Date: 20120412
  Transmission Date: 20120825
  Serious: Yes (Hospitalization, Other)
  Sender: FDA-Public Use
  Company Number: GB-JNJFOC-2005034708

PATIENT
  Age: 34 Year
  Sex: Female

DRUGS (2)
  1. ACETAMINOPHEN [Suspect]
     Route: 048
  2. ACETAMINOPHEN [Suspect]
     Indication: PRODUCT USED FOR UNKNOWN INDICATION
     Dosage: DAILY DOSE TEXT: 300 TABLETS (150 GRAMS) OVER 5 HOURS
     Route: 048

REACTIONS (8)
  - AGGRESSION [None]
  - SOMNOLENCE [None]
  - SEDATION [None]
  - HEPATIC FAILURE [None]
  - INTENTIONAL OVERDOSE [None]
  - COMA [None]
  - METABOLIC ACIDOSIS [None]
  - HYPOTENSION [None]
